FAERS Safety Report 8667202 (Version 2)
Quarter: 2012Q4

REPORT INFORMATION
  Report Type: 
  Country: JP (occurrence: JP)
  Receive Date: 20120717
  Receipt Date: 20120830
  Transmission Date: 20130627
  Serious: Yes (Other)
  Sender: FDA-Public Use
  Company Number: JP-AMGEN-JPNSP2012042577

PATIENT

DRUGS (2)
  1. ENBREL [Suspect]
     Indication: PRODUCT USED FOR UNKNOWN INDICATION
     Dosage: 25 mg, weekly
     Route: 058
     Dates: start: 2010
  2. RHEUMATREX [Suspect]
     Dosage: 8 mg, weekly
     Route: 048

REACTIONS (1)
  - Pancreatitis acute [Recovered/Resolved]
